FAERS Safety Report 5486827-6 (Version None)
Quarter: 2007Q4

REPORT INFORMATION
  Report Type: 
  Country: None (occurrence: None)
  Receive Date: 20071016
  Receipt Date: 20071001
  Transmission Date: 20080405
  Serious: Yes (Death, Hospitalization, Other)
  Sender: FDA-Public Use
  Company Number: JP-ASTRAZENECA-2007AP05924

PATIENT
  Age: 25447 Day
  Sex: Male

DRUGS (7)
  1. SEROQUEL [Suspect]
     Indication: HYPOCHONDRIASIS
     Route: 048
     Dates: start: 20051211
  2. SEROQUEL [Suspect]
     Route: 048
  3. SEROQUEL [Suspect]
     Route: 048
     Dates: end: 20070731
  4. SEROQUEL [Suspect]
     Route: 048
  5. DOGMATYL [Suspect]
     Indication: DEPRESSION
     Route: 048
     Dates: start: 20011107, end: 20011212
  6. MENESIT [Concomitant]
     Indication: PARKINSON'S DISEASE
     Route: 048
     Dates: start: 20050101
  7. DOPS [Concomitant]
     Indication: PARKINSON'S DISEASE

REACTIONS (2)
  - COMPLETED SUICIDE [None]
  - PARKINSONISM [None]
